FAERS Safety Report 13554182 (Version 3)
Quarter: 2018Q4

REPORT INFORMATION
  Report Type: Spontaneous
  Country: JP (occurrence: JP)
  Receive Date: 20170517
  Receipt Date: 20181212
  Transmission Date: 20190204
  Serious: Yes (Hospitalization)
  Sender: FDA-Public Use
  Company Number: JP-BAYER-2017-090583

PATIENT
  Age: 63 Year
  Sex: Female

DRUGS (5)
  1. PHENYTOIN. [Concomitant]
     Active Substance: PHENYTOIN
  2. CARBAMAZEPINE. [Concomitant]
     Active Substance: CARBAMAZEPINE
  3. DEPAS [ETIZOLAM] [Concomitant]
     Active Substance: ETIZOLAM
  4. AMLODIN [Concomitant]
     Active Substance: AMLODIPINE BESYLATE
  5. BAYASPIRIN 100 MG [Suspect]
     Active Substance: ASPIRIN
     Dosage: UNK
     Route: 048

REACTIONS (4)
  - Hypokalaemia [None]
  - Gastrointestinal oedema [None]
  - Diarrhoea [Recovered/Resolved]
  - Colitis microscopic [Recovering/Resolving]
